FAERS Safety Report 15081481 (Version 1)
Quarter: 2018Q2

REPORT INFORMATION
  Report Type: Spontaneous
  Country: IT (occurrence: IT)
  Receive Date: 20180628
  Receipt Date: 20180628
  Transmission Date: 20180711
  Serious: Yes (Hospitalization)
  Sender: FDA-Public Use
  Company Number: PHHY2018IT028500

PATIENT
  Age: 43 Year
  Sex: Female

DRUGS (6)
  1. PACLITAXEL. [Suspect]
     Active Substance: PACLITAXEL
     Dosage: 80 MG/M2, CYCLIC (DAY 1, 15 EVERY 28 DAYS)
     Route: 065
     Dates: start: 201711
  2. DENOSUMAB [Suspect]
     Active Substance: DENOSUMAB
     Indication: BREAST CANCER
     Dosage: 120 MG, EVERY 28 DAYS
     Route: 065
     Dates: start: 201612
  3. PACLITAXEL. [Suspect]
     Active Substance: PACLITAXEL
     Indication: BREAST CANCER
     Dosage: 80 MG/M2, CYCLIC (DAY 1, 15 EVERY 28 DAYS)
     Route: 065
     Dates: start: 201612
  4. AVASTIN [Suspect]
     Active Substance: BEVACIZUMAB
     Indication: BREAST CANCER
     Dosage: 10 MG/M2, EVERY 14 DAYS
     Route: 042
     Dates: start: 201612, end: 201711
  5. AVASTIN [Suspect]
     Active Substance: BEVACIZUMAB
     Dosage: 10 MG/M2, EVERY 21 DAYS
     Route: 042
     Dates: start: 201711
  6. DENOSUMAB [Suspect]
     Active Substance: DENOSUMAB
     Dosage: 120 MG, EVERY 28 DAYS
     Route: 065
     Dates: start: 201702

REACTIONS (5)
  - Thrombocytopenia [Unknown]
  - Anaemia [Recovered/Resolved]
  - Neurotoxicity [Unknown]
  - Paraesthesia [Unknown]
  - Hypocalcaemia [Unknown]

NARRATIVE: CASE EVENT DATE: 2017
